FAERS Safety Report 4289702-8 (Version None)
Quarter: 2004Q1

REPORT INFORMATION
  Report Type: 
  Country: None (occurrence: None)
  Receive Date: 20040123
  Receipt Date: 20031008
  Transmission Date: 20041129
  Serious: Yes (Hospitalization)
  Sender: FDA-Public Use
  Company Number: LOV-US-03-00147

PATIENT
  Age: 57 Year
  Sex: Female
  Weight: 71.2147 kg

DRUGS (7)
  1. ALTOCOR [Suspect]
     Dosage: 60 MG QD PO
     Route: 048
     Dates: start: 20030813, end: 20030908
  2. FOSAMAX [Concomitant]
  3. ASPIRIN [Concomitant]
  4. ASACHOL (MESALAMINE) [Concomitant]
  5. MULTI-VITAMIN [Concomitant]
  6. VITAMIN E [Concomitant]
  7. CALCIUM [Concomitant]

REACTIONS (3)
  - DYSPNOEA [None]
  - LIVER FUNCTION TEST ABNORMAL [None]
  - RHABDOMYOLYSIS [None]
